FAERS Safety Report 8599095-3 (Version None)
Quarter: 2012Q3

REPORT INFORMATION
  Report Type: 
  Country: None (occurrence: None)
  Receive Date: 20120816
  Receipt Date: 20120810
  Transmission Date: 20120928
  Serious: Yes (Other)
  Sender: FDA-Public Use
  Company Number: CA-ROCHE-1101059

PATIENT
  Sex: Female
  Weight: 125.76 kg

DRUGS (5)
  1. VENTOLIN [Concomitant]
     Route: 055
  2. MABTHERA [Suspect]
     Indication: RHEUMATOID ARTHRITIS
     Dosage: FREQUENCY DAY1, 15
     Route: 042
     Dates: start: 20120213
  3. PANTOPRAZOLE SODIUM [Concomitant]
  4. REACTINE (CANADA) [Concomitant]
     Indication: HYPERSENSITIVITY
  5. SYNTHROID [Concomitant]
     Indication: HYPOTHYROIDISM

REACTIONS (1)
  - DIZZINESS [None]
